FAERS Safety Report 8828823 (Version 2)
Quarter: 2013Q1

REPORT INFORMATION
  Report Type: Spontaneous
  Country: US (occurrence: US)
  Receive Date: 20121008
  Receipt Date: 20130108
  Transmission Date: 20140127
  Serious: Yes (Hospitalization, Disabling, Other)
  Sender: FDA-Public Use
  Company Number: US-009507513-1210USA002664

PATIENT
  Sex: 0

DRUGS (1)
  1. FOSAMAX [Suspect]
     Dosage: UNK
     Route: 048
     Dates: start: 2000, end: 201006

REACTIONS (19)
  - Femur fracture [Unknown]
  - Open reduction of fracture [Unknown]
  - Acetabulum fracture [Unknown]
  - Open reduction of fracture [Unknown]
  - Low turnover osteopathy [Unknown]
  - Spinal fracture [Unknown]
  - Bone disorder [Unknown]
  - Osteoarthritis [Unknown]
  - Lymphadenopathy [Unknown]
  - Hiatus hernia [Unknown]
  - Atelectasis [Unknown]
  - Pulmonary fibrosis [Unknown]
  - Retroperitoneal lymphadenopathy [Unknown]
  - Abdominal mass [Unknown]
  - Bone disorder [Unknown]
  - Renal cyst [Unknown]
  - Diverticulum [Unknown]
  - Parkinson^s disease [Unknown]
  - Dysphonia [Unknown]
